FAERS Safety Report 24760815 (Version 5)
Quarter: 2025Q1

REPORT INFORMATION
  Report Type: Spontaneous
  Country: US (occurrence: US)
  Receive Date: 20241220
  Receipt Date: 20250120
  Transmission Date: 20250408
  Serious: Yes (Hospitalization, Other)
  Sender: SANDOZ
  Company Number: US-002147023-NVSC2024US238420

PATIENT
  Age: 6 Year
  Sex: Female
  Weight: 25.6 kg

DRUGS (8)
  1. AMLODIPINE [Suspect]
     Active Substance: AMLODIPINE BESYLATE
     Indication: Hypertension
     Route: 065
  2. ENALAPRIL MALEATE [Suspect]
     Active Substance: ENALAPRIL MALEATE
     Indication: Hypertension
     Route: 065
  3. ALDACTAZIDE [Concomitant]
     Active Substance: HYDROCHLOROTHIAZIDE\SPIRONOLACTONE
     Indication: Hypertension
     Route: 065
  4. AMLODIPINE [Concomitant]
     Active Substance: AMLODIPINE BESYLATE
     Indication: Hypertension
     Route: 065
  5. CLONIDINE [Concomitant]
     Active Substance: CLONIDINE
     Indication: Hypertension
     Route: 065
  6. EMAPALUMAB [Concomitant]
     Active Substance: EMAPALUMAB
     Indication: Product used for unknown indication
     Route: 065
  7. ENALAPRIL MALEATE [Concomitant]
     Active Substance: ENALAPRIL MALEATE
     Indication: Hypertension
     Route: 065
  8. TADALAFIL [Concomitant]
     Active Substance: TADALAFIL
     Indication: Hypertension
     Route: 065

REACTIONS (21)
  - Hypokalaemia [Not Recovered/Not Resolved]
  - Gastroenteritis viral [Recovering/Resolving]
  - Electrolyte imbalance [Recovering/Resolving]
  - Dehydration [Recovering/Resolving]
  - Hyponatraemia [Recovered/Resolved]
  - Metabolic acidosis [Recovering/Resolving]
  - Hypoglycaemia [Recovering/Resolving]
  - Diversion colitis [Recovering/Resolving]
  - Small intestinal obstruction [Recovering/Resolving]
  - Vomiting [Recovering/Resolving]
  - Abdominal pain [Recovering/Resolving]
  - Blood pressure decreased [Recovering/Resolving]
  - Fatigue [Recovering/Resolving]
  - Hypotension [Recovering/Resolving]
  - Hypoalbuminaemia [Not Recovered/Not Resolved]
  - White blood cell count increased [Recovered/Resolved]
  - Neutrophil count increased [Unknown]
  - Anaemia [Unknown]
  - Blood sodium decreased [Unknown]
  - Abdominal adhesions [Unknown]
  - Gastrointestinal stoma output decreased [Unknown]

NARRATIVE: CASE EVENT DATE: 20241206
